FAERS Safety Report 9550128 (Version 2)
Quarter: 2014Q1

REPORT INFORMATION
  Report Type: Spontaneous
  Country: FR (occurrence: FR)
  Receive Date: 20130924
  Receipt Date: 20140128
  Transmission Date: 20141002
  Serious: Yes (Congenital Anomaly)
  Sender: FDA-Public Use
  Company Number: FR-RB-058616-13

PATIENT
  Sex: 0

DRUGS (1)
  1. SUBUTEX [Suspect]
     Indication: PRODUCT USED FOR UNKNOWN INDICATION
     Dosage: EXPOSURE VIA FATHER: INJECTING MORE THAN 16 MG DAILY AND MOTHER TAKING MORE THAN 16 MG DAILY AS WELL
     Route: 064

REACTIONS (2)
  - Foetal exposure during pregnancy [Recovered/Resolved]
  - Cleft lip [Unknown]
